FAERS Safety Report 6506810-9 (Version None)
Quarter: 2009Q4

REPORT INFORMATION
  Report Type: 
  Country: None (occurrence: None)
  Receive Date: 20091221
  Receipt Date: 20091210
  Transmission Date: 20100525
  Serious: Yes (Life-Threatening, Hospitalization)
  Sender: FDA-Public Use
  Company Number: US-PFIZER INC-2009247710

PATIENT
  Sex: Male
  Weight: 93 kg

DRUGS (9)
  1. MARAVIROC [Suspect]
     Indication: HIV INFECTION
     Dosage: 150 MG, 2X/DAY
     Route: 048
     Dates: start: 20080130
  2. REYATAZ [Concomitant]
     Dosage: UNK
     Route: 048
     Dates: start: 20050425
  3. OMEGA [Concomitant]
     Dosage: 35 MG, UNK
     Route: 048
     Dates: start: 20071024
  4. BACTRIM [Concomitant]
     Dosage: UNK
     Route: 048
     Dates: start: 20041104
  5. TRAZODONE [Concomitant]
     Dosage: UNK
     Route: 048
     Dates: start: 20041104
  6. EPZICOM [Concomitant]
     Dosage: UNK
     Route: 048
     Dates: start: 20050425
  7. NORVIR [Concomitant]
     Dosage: UNK
     Route: 048
     Dates: start: 20050425
  8. FUZEON [Concomitant]
     Dosage: UNK
     Route: 042
     Dates: start: 20050425
  9. HYDROCHLOROTHIAZIDE [Concomitant]
     Dosage: UNK
     Route: 048
     Dates: start: 20060619

REACTIONS (1)
  - ACUTE MYOCARDIAL INFARCTION [None]
